FAERS Safety Report 14834846 (Version 1)
Quarter: 2018Q2

REPORT INFORMATION
  Report Type: Spontaneous
  Country: US (occurrence: US)
  Receive Date: 20180501
  Receipt Date: 20180501
  Transmission Date: 20180711
  Serious: No
  Sender: FDA-Public Use
  Company Number: US-AMGEN-USASP2017174823

PATIENT
  Age: 63 Year
  Sex: Female

DRUGS (1)
  1. IMLYGIC [Suspect]
     Active Substance: TALIMOGENE LAHERPAREPVEC
     Indication: ACRAL LENTIGINOUS MELANOMA
     Dosage: UNK
     Route: 065
     Dates: start: 20171115

REACTIONS (2)
  - Injection site pain [Unknown]
  - Pain [Unknown]

NARRATIVE: CASE EVENT DATE: 20171115
